FAERS Safety Report 20361173 (Version 1)
Quarter: 2022Q1

REPORT INFORMATION
  Report Type: Spontaneous
  Country: US (occurrence: None)
  Receive Date: 20220120
  Receipt Date: 20220120
  Transmission Date: 20220423
  Serious: Yes (unspecified)
  Sender: FDA-Public Use
  Company Number: None

PATIENT
  Age: 72 Year
  Sex: Female
  Weight: 54.9 kg

DRUGS (13)
  1. PROLIA [Suspect]
     Active Substance: DENOSUMAB
     Indication: Osteoporosis
     Dosage: OTHER FREQUENCY : ONCE EVER 180 DAYS;?
     Route: 058
  2. NITROFURANTOIN MONOHYDRATE MACROCRYSTALS [Concomitant]
     Active Substance: NITROFURANTOIN\NITROFURANTOIN MONOHYDRATE
  3. LOSARTAN [Concomitant]
     Active Substance: LOSARTAN
  4. OMEPRAZOLE [Concomitant]
     Active Substance: OMEPRAZOLE
  5. EZETIMIBE [Concomitant]
     Active Substance: EZETIMIBE
  6. HYDROXYZINE [Concomitant]
     Active Substance: HYDROXYZINE HYDROCHLORIDE
  7. NOTRIPTYLINE [Concomitant]
  8. PREMARIN VAGINAL [Concomitant]
     Active Substance: ESTROGENS, CONJUGATED
  9. VITAMIN D [Concomitant]
     Active Substance: VITAMIN D NOS
  10. MENAQUINONE 6 [Concomitant]
     Active Substance: MENAQUINONE 6
  11. CALCIUM [Concomitant]
     Active Substance: CALCIUM
  12. ALOE VERA LEAF [Concomitant]
     Active Substance: ALOE VERA LEAF
  13. D-MANNOSE [Concomitant]

REACTIONS (4)
  - Cystitis [None]
  - Urinary tract infection [None]
  - Cystitis interstitial [None]
  - Pyrexia [None]

NARRATIVE: CASE EVENT DATE: 20210929
